FAERS Safety Report 14521115 (Version 1)
Quarter: 2018Q1

REPORT INFORMATION
  Report Type: Spontaneous
  Country: US (occurrence: US)
  Receive Date: 20180212
  Receipt Date: 20180212
  Transmission Date: 20180509
  Serious: Yes (Hospitalization, Other)
  Sender: FDA-Public Use
  Company Number: US-AMAG PHARMACEUTICALS, INC.-AMAG201700982

PATIENT
  Age: 0 Day
  Sex: Female

DRUGS (3)
  1. MAKENA [Suspect]
     Active Substance: HYDROXYPROGESTERONE CAPROATE
     Indication: FOETAL EXPOSURE DURING PREGNANCY
     Dosage: 250 MG, WEEKLY
     Route: 065
     Dates: start: 20160620, end: 20160725
  2. MAKENA [Suspect]
     Active Substance: HYDROXYPROGESTERONE CAPROATE
     Dosage: 250 MG, WEEKLY
     Route: 065
     Dates: start: 20161013, end: 20161013
  3. MAKENA [Suspect]
     Active Substance: HYDROXYPROGESTERONE CAPROATE
     Dosage: 250 MG, WEEKLY
     Route: 065
     Dates: start: 20160805, end: 20160927

REACTIONS (1)
  - Premature baby [Recovered/Resolved]

NARRATIVE: CASE EVENT DATE: 20161029
